FAERS Safety Report 16974260 (Version 1)
Quarter: 2019Q4

REPORT INFORMATION
  Report Type: Spontaneous
  Country: US (occurrence: US)
  Receive Date: 20191030
  Receipt Date: 20191030
  Transmission Date: 20200122
  Serious: Yes (Hospitalization)
  Sender: FDA-Public Use
  Company Number: NVSC2019US016565

PATIENT
  Age: 87 Year
  Sex: Female

DRUGS (1)
  1. EXELON PATCH [Suspect]
     Active Substance: RIVASTIGMINE
     Indication: DEMENTIA
     Dosage: 4.6 MG, QH
     Route: 062

REACTIONS (6)
  - Cholinergic syndrome [Recovered/Resolved]
  - Muscular weakness [Recovered/Resolved]
  - Confusional state [Recovered/Resolved]
  - Hyponatraemia [Unknown]
  - Dizziness [Recovered/Resolved]
  - Vomiting [Recovered/Resolved]
